FAERS Safety Report 7367222-1 (Version None)
Quarter: 2011Q1

REPORT INFORMATION
  Report Type: 
  Country: None (occurrence: None)
  Receive Date: 20110311
  Receipt Date: 20110301
  Transmission Date: 20110831
  Serious: Yes (Hospitalization)
  Sender: FDA-Public Use
  Company Number: TPA2011A00873

PATIENT
  Age: 81 Year
  Sex: Male
  Weight: 92.0802 kg

DRUGS (2)
  1. UNKNOWN BLOOD PRESSURE MEDICATION (ANTIHYPERTENSIVES) [Concomitant]
  2. ACTOS [Suspect]
     Indication: TYPE 2 DIABETES MELLITUS
     Dosage: 1 IN 1 D
     Dates: end: 20110301

REACTIONS (3)
  - BLADDER TRANSITIONAL CELL CARCINOMA [None]
  - NASOPHARYNGITIS [None]
  - INFECTION [None]
